FAERS Safety Report 10414938 (Version 2)
Quarter: 2014Q4

REPORT INFORMATION
  Report Type: Report from Study
  Country: US (occurrence: US)
  Receive Date: 20140828
  Receipt Date: 20141002
  Transmission Date: 20150528
  Serious: Yes (Death, Hospitalization, Other)
  Sender: FDA-Public Use
  Company Number: PHEH2014US017123

PATIENT
  Age: 85 Year
  Sex: Female

DRUGS (5)
  1. IMMUNE GLOBULIN [Concomitant]
     Active Substance: HUMAN IMMUNOGLOBULIN G
     Dosage: 50 G
     Route: 042
     Dates: start: 20140708, end: 20140708
  2. IMMUNE GLOBULIN [Concomitant]
     Active Substance: HUMAN IMMUNOGLOBULIN G
     Indication: POST TRANSFUSION PURPURA
     Dosage: 25 G
     Route: 042
     Dates: start: 20140701, end: 20140701
  3. APO-HYDROXYUREA [Concomitant]
     Indication: MYELODYSPLASTIC SYNDROME
     Dosage: 500 MG, DAILY
     Route: 048
     Dates: start: 20140625, end: 20140710
  4. IMMUNE GLOBULIN [Concomitant]
     Active Substance: HUMAN IMMUNOGLOBULIN G
     Dosage: 50 G
     Route: 042
     Dates: start: 20140707, end: 20140707
  5. EXJADE [Suspect]
     Active Substance: DEFERASIROX
     Indication: MYELODYSPLASTIC SYNDROME
     Dosage: 1500 MG, QD
     Route: 048
     Dates: start: 20140326

REACTIONS (13)
  - Urosepsis [Recovered/Resolved]
  - Thrombocytopenia [Not Recovered/Not Resolved]
  - Myelodysplastic syndrome [Unknown]
  - Septic shock [Unknown]
  - Hypersensitivity [Unknown]
  - Tachycardia [Unknown]
  - Anaemia [Fatal]
  - Hypertension [Unknown]
  - Bacteraemia [Recovered/Resolved]
  - Post transfusion purpura [Not Recovered/Not Resolved]
  - Pyrexia [Unknown]
  - Disease progression [Unknown]
  - Serum ferritin increased [Unknown]

NARRATIVE: CASE EVENT DATE: 20140619
